FAERS Safety Report 14123953 (Version 1)
Quarter: 2017Q4

REPORT INFORMATION
  Report Type: Report from Study
  Country: DE (occurrence: DE)
  Receive Date: 20171025
  Receipt Date: 20171025
  Transmission Date: 20180321
  Serious: Yes (Hospitalization)
  Sender: FDA-Public Use
  Company Number: DE-ROCHE-1478567

PATIENT
  Age: 66 Year
  Sex: Female
  Weight: 76.1 kg

DRUGS (15)
  1. PREDNISOLON [Concomitant]
     Active Substance: PREDNISOLONE
     Indication: ARTHRITIS
     Route: 048
     Dates: start: 20111101
  2. EXEMESTANE. [Suspect]
     Active Substance: EXEMESTANE
     Indication: PRODUCT USED FOR UNKNOWN INDICATION
     Route: 048
     Dates: start: 20120703
  3. PRETERAX [Concomitant]
     Active Substance: INDAPAMIDE\PERINDOPRIL
     Dosage: 5/1.25 MG
     Route: 048
     Dates: start: 20090128
  4. BEVACIZUMAB. [Suspect]
     Active Substance: BEVACIZUMAB
     Route: 042
     Dates: start: 20121016, end: 20121016
  5. PARACETAMOL [Concomitant]
     Active Substance: ACETAMINOPHEN
     Route: 048
     Dates: start: 20111104
  6. PANTOZOL [Concomitant]
     Active Substance: PANTOPRAZOLE SODIUM
     Route: 048
     Dates: start: 20120116
  7. XELODA [Suspect]
     Active Substance: CAPECITABINE
     Dosage: D1 TO D14 OF EACH CYCLE
     Route: 048
     Dates: start: 20120319, end: 20120523
  8. AMLODIPIN [Concomitant]
     Active Substance: AMLODIPINE BESYLATE
     Route: 048
     Dates: start: 20111202
  9. CALCILAC (GERMANY) [Concomitant]
     Active Substance: CALCIUM CARBONATE\CHOLECALCIFEROL
     Dosage: 500/440 MG
     Route: 048
     Dates: start: 20111104
  10. INSULIN [Concomitant]
     Active Substance: INSULIN NOS
     Indication: DIABETES MELLITUS
     Route: 058
     Dates: start: 20111101
  11. PREDNISOLON [Concomitant]
     Active Substance: PREDNISOLONE
     Dosage: ONLY GIVEN ONCE
     Route: 042
     Dates: start: 20111108, end: 20111108
  12. DICLOFENAC [Concomitant]
     Active Substance: DICLOFENAC
     Indication: ARTHRITIS
     Route: 048
     Dates: start: 20101108
  13. BEVACIZUMAB. [Suspect]
     Active Substance: BEVACIZUMAB
     Indication: BREAST CANCER
     Route: 042
     Dates: start: 20111104
  14. XELODA [Suspect]
     Active Substance: CAPECITABINE
     Indication: BREAST CANCER
     Dosage: 4000 MG, D1 TO D14 OF EACH CYCLE
     Route: 048
     Dates: start: 20111104, end: 20120127
  15. CLEXANE [Concomitant]
     Active Substance: ENOXAPARIN SODIUM
     Route: 058
     Dates: start: 20120127

REACTIONS (1)
  - Liver disorder [Recovering/Resolving]

NARRATIVE: CASE EVENT DATE: 20131213
